FAERS Safety Report 17598997 (Version 1)
Quarter: 2020Q1

REPORT INFORMATION
  Report Type: Spontaneous
  Country: US (occurrence: US)
  Receive Date: 20200330
  Receipt Date: 20200330
  Transmission Date: 20200409
  Serious: No
  Sender: FDA-Public Use
  Company Number: None

PATIENT
  Age: 65 Year
  Weight: 76.5 kg

DRUGS (22)
  1. FISH OIL [Concomitant]
     Active Substance: FISH OIL
  2. SUMATRIPTAN 100 [Concomitant]
  3. PROCARDIA XL 30MG [Concomitant]
  4. VITAMIN B12 [Concomitant]
     Active Substance: CYANOCOBALAMIN
  5. CALCIUM [Concomitant]
     Active Substance: CALCIUM
  6. MAGNESIUM ZINC [Concomitant]
  7. FLUTICASONE PROPRIANATE [Concomitant]
  8. VITAMIN B COMPLEX [Concomitant]
     Active Substance: CYANOCOBALAMIN\DEXPANTHENOL\NIACINAMIDE\PYRIDOXINE HYDROCHLORIDE\RIBOFLAVIN 5^-PHOSPHATE SODIUM\THIAMINE HYDROCHLORIDE\VITAMIN B COMPLEX
  9. VITAMIN C [Concomitant]
     Active Substance: ASCORBIC ACID
  10. BIOTIN [Concomitant]
     Active Substance: BIOTIN
  11. MILK THISTLE [Concomitant]
     Active Substance: DIETARY SUPPLEMENT\HERBALS\MILK THISTLE
  12. CETERIZINE [Concomitant]
     Active Substance: CETIRIZINE HYDROCHLORIDE
  13. VIT D [Concomitant]
     Active Substance: VITAMIN D NOS
  14. BUSPIRONE [Concomitant]
     Active Substance: BUSPIRONE HYDROCHLORIDE
  15. LOSARTAN 50MG [Concomitant]
     Active Substance: LOSARTAN
  16. ALPRAZOLAM .25 MG SANDOZ [Concomitant]
     Active Substance: ALPRAZOLAM
  17. SHINGREX INJECTION [Concomitant]
  18. WALGREEN EYE HEALTH [Concomitant]
  19. TRINTELLIX [Suspect]
     Active Substance: VORTIOXETINE HYDROBROMIDE
     Indication: DEPRESSION
     Dosage: ?          QUANTITY:1 TABLET(S);?
     Route: 048
     Dates: start: 20200224
  20. PROPRANOLOL 40MG TAB HER [Concomitant]
     Active Substance: PROPRANOLOL HYDROCHLORIDE
  21. PREVNAR 13 INJECTION [Concomitant]
  22. LUCOSAMINE CHONDROINTIN MSN [Concomitant]

REACTIONS (2)
  - Muscle spasms [None]
  - Dehydration [None]

NARRATIVE: CASE EVENT DATE: 20200311
